FAERS Safety Report 8510085-9 (Version None)
Quarter: 2012Q2

REPORT INFORMATION
  Report Type: 
  Country: None (occurrence: None)
  Receive Date: 20120405
  Receipt Date: 20090626
  Transmission Date: 20120825
  Serious: Yes (Other)
  Sender: FDA-Public Use
  Company Number: PHEH2009US07090

PATIENT
  Sex: Female

DRUGS (2)
  1. RECLAST [Suspect]
     Indication: OSTEOPOROSIS
     Dosage: UNK, INFUSION
     Dates: start: 20081221
  2. NABUMETONE [Concomitant]

REACTIONS (2)
  - BEDRIDDEN [None]
  - PAIN [None]
